FAERS Safety Report 6800762-X (Version None)
Quarter: 2010Q2

REPORT INFORMATION
  Report Type: 
  Country: None (occurrence: None)
  Receive Date: 20100629
  Receipt Date: 20100625
  Transmission Date: 20101027
  Serious: Yes (Disabling, Other)
  Sender: FDA-Public Use
  Company Number: FR-SANOFI-AVENTIS-2010SA031509

PATIENT
  Age: 46 Year
  Sex: Female
  Weight: 82 kg

DRUGS (3)
  1. RIFINAH [Suspect]
     Indication: TUBERCULOSIS
     Dosage: DOSE:2 UNIT(S)
     Route: 048
     Dates: start: 20090915, end: 20091215
  2. TOPALGIC [Concomitant]
     Indication: PAIN
     Route: 048
     Dates: start: 20091015
  3. RIVOTRIL [Concomitant]
     Route: 048
     Dates: start: 20091015

REACTIONS (4)
  - ARTHRALGIA [None]
  - HAEMARTHROSIS [None]
  - PARAESTHESIA [None]
  - TENDON RUPTURE [None]
